FAERS Safety Report 9436487 (Version 1)
Quarter: 2013Q3

REPORT INFORMATION
  Report Type: Spontaneous
  Country: DE (occurrence: DE)
  Receive Date: 20130802
  Receipt Date: 20130802
  Transmission Date: 20140515
  Serious: Yes (Hospitalization, Other)
  Sender: FDA-Public Use
  Company Number: DE-ROCHE-1254344

PATIENT
  Age: 3 Day
  Sex: Male

DRUGS (2)
  1. CLONAZEPAM [Suspect]
     Indication: PRODUCT USED FOR UNKNOWN INDICATION
     Route: 064
     Dates: start: 20071109, end: 20080810
  2. PAROXETINE [Suspect]
     Indication: PRODUCT USED FOR UNKNOWN INDICATION
     Route: 064
     Dates: start: 20071109, end: 20080810

REACTIONS (6)
  - Myoclonus [Recovered/Resolved]
  - Hypertonia neonatal [Recovered/Resolved]
  - Maternal exposure timing unspecified [Unknown]
  - Pallor [Recovered/Resolved]
  - Hypertonia [Recovered/Resolved]
  - Opisthotonus [Recovered/Resolved]
